FAERS Safety Report 12777895 (Version 1)
Quarter: 2016Q3

REPORT INFORMATION
  Report Type: Spontaneous
  Country: US (occurrence: US)
  Receive Date: 20160924
  Receipt Date: 20160924
  Transmission Date: 20161109
  Serious: No
  Sender: FDA-Public Use
  Company Number: US-JAZZ-2016-US-010853

PATIENT
  Age: 45 Year
  Sex: Female

DRUGS (21)
  1. XYREM [Suspect]
     Active Substance: SODIUM OXYBATE
     Indication: CATAPLEXY
     Dosage: DOSE ADJUSTMENTS
     Route: 048
     Dates: start: 201604, end: 201605
  2. PREDNISONE. [Concomitant]
     Active Substance: PREDNISONE
  3. PRILOSEC [Concomitant]
     Active Substance: OMEPRAZOLE MAGNESIUM
  4. PROMETHAZINE [Concomitant]
     Active Substance: PROMETHAZINE\PROMETHAZINE HYDROCHLORIDE
  5. SUDAFED [Concomitant]
     Active Substance: PSEUDOEPHEDRINE HYDROCHLORIDE
  6. XYREM [Suspect]
     Active Substance: SODIUM OXYBATE
     Indication: NARCOLEPSY
     Dosage: 2.25 G, BID
     Route: 048
     Dates: start: 201604, end: 201604
  7. XYREM [Suspect]
     Active Substance: SODIUM OXYBATE
     Dosage: 4.5 G, BID
     Route: 048
     Dates: start: 201605
  8. ELMIRON [Concomitant]
     Active Substance: PENTOSAN POLYSULFATE SODIUM
  9. ANUSOL HC [Concomitant]
     Active Substance: HYDROCORTISONE
  10. PROVIGIL [Concomitant]
     Active Substance: MODAFINIL
  11. LYRICA [Concomitant]
     Active Substance: PREGABALIN
  12. BENTYL [Concomitant]
     Active Substance: DICYCLOMINE HYDROCHLORIDE
  13. MIRALAX [Concomitant]
     Active Substance: POLYETHYLENE GLYCOL 3350
  14. TOPROL XL [Concomitant]
     Active Substance: METOPROLOL SUCCINATE
  15. FLUCONAZOLE. [Concomitant]
     Active Substance: FLUCONAZOLE
  16. VOLTAREN [Concomitant]
     Active Substance: DICLOFENAC SODIUM
  17. PATANOL [Concomitant]
     Active Substance: OLOPATADINE HYDROCHLORIDE
  18. CELEBREX [Concomitant]
     Active Substance: CELECOXIB
  19. ERGOCALCIFEROL. [Concomitant]
     Active Substance: ERGOCALCIFEROL
  20. DOXYCYCLINE. [Suspect]
     Active Substance: DOXYCYCLINE
     Indication: PRODUCT USED FOR UNKNOWN INDICATION
     Dosage: UNK
  21. SINGULAIR [Concomitant]
     Active Substance: MONTELUKAST SODIUM

REACTIONS (5)
  - Photosensitivity reaction [Not Recovered/Not Resolved]
  - Muscle spasms [Unknown]
  - Urine odour abnormal [Not Recovered/Not Resolved]
  - Fibromyalgia [Unknown]
  - Muscle tightness [Unknown]

NARRATIVE: CASE EVENT DATE: 2016
